FAERS Safety Report 19154426 (Version 1)
Quarter: 2021Q2

REPORT INFORMATION
  Report Type: Report from Study
  Country: US (occurrence: US)
  Receive Date: 20210419
  Receipt Date: 20210419
  Transmission Date: 20210717
  Serious: Yes (Death)
  Sender: FDA-Public Use
  Company Number: US-TAIHO ONCOLOGY  INC-EU-2021-01114

PATIENT
  Age: 74 Year
  Sex: Male

DRUGS (5)
  1. DRONABINOL. [Concomitant]
     Active Substance: DRONABINOL
  2. LONSURF [Suspect]
     Active Substance: TIPIRACIL HYDROCHLORIDE\TRIFLURIDINE
     Indication: COLON CANCER
     Dosage: CYCLE UNKNOWN
     Route: 048
     Dates: start: 20210202
  3. MIRTAZAPINE. [Concomitant]
     Active Substance: MIRTAZAPINE
  4. DULOXETINE. [Concomitant]
     Active Substance: DULOXETINE
  5. LISINOPRIL. [Concomitant]
     Active Substance: LISINOPRIL

REACTIONS (1)
  - Death [Fatal]

NARRATIVE: CASE EVENT DATE: 202104
